FAERS Safety Report 18344331 (Version 1)
Quarter: 2020Q4

REPORT INFORMATION
  Report Type: Spontaneous
  Country: HU (occurrence: HU)
  Receive Date: 20201005
  Receipt Date: 20201005
  Transmission Date: 20210114
  Serious: Yes (Hospitalization)
  Sender: FDA-Public Use
  Company Number: HU-PERRIGO-20HU013619

PATIENT
  Age: 47 Year
  Sex: Female

DRUGS (1)
  1. POTASSIUM CHLORIDE. [Suspect]
     Active Substance: POTASSIUM CHLORIDE
     Indication: SUICIDE ATTEMPT
     Dosage: 50 TABETS, SINGLE
     Route: 048

REACTIONS (4)
  - Electrocardiogram T wave peaked [Recovered/Resolved]
  - Bezoar [Recovered/Resolved]
  - Intentional overdose [Recovered/Resolved]
  - Hyperkalaemia [Recovered/Resolved]
